FAERS Safety Report 6403098-4 (Version None)
Quarter: 2009Q4

REPORT INFORMATION
  Report Type: 
  Country: None (occurrence: None)
  Receive Date: 20091016
  Receipt Date: 20091006
  Transmission Date: 20100525
  Serious: Yes (Other)
  Sender: FDA-Public Use
  Company Number: PHHY2009JP43257

PATIENT
  Age: 48 Year
  Sex: Female

DRUGS (2)
  1. LOCHOL [Suspect]
     Dosage: EVERY DAY FOR A MONTH
     Route: 048
     Dates: start: 20090601
  2. LOCHOL [Suspect]
     Dosage: EVERY OTHER DAY
     Route: 048

REACTIONS (3)
  - MUSCLE SWELLING [None]
  - MYALGIA [None]
  - UTERINE LEIOMYOMA [None]
